FAERS Safety Report 8591252-5 (Version None)
Quarter: 2012Q3

REPORT INFORMATION
  Report Type: 
  Country: None (occurrence: None)
  Receive Date: 20120813
  Receipt Date: 20120731
  Transmission Date: 20120928
  Serious: Yes (Death, Life-Threatening)
  Sender: FDA-Public Use
  Company Number: JP-BRISTOL-MYERS SQUIBB COMPANY-13897525

PATIENT
  Age: 60 Year
  Sex: Male
  Weight: 53 kg

DRUGS (12)
  1. RINGERS SOLUTION, LACTATED [Concomitant]
     Dosage: INJ
     Route: 042
     Dates: start: 20070726, end: 20070726
  2. ABILIFY [Suspect]
     Indication: SCHIZOPHRENIA
     Dosage: 27JUN07-2JUL07;12MG,6DAYS.03-JUL-11JUL 24MG/DAY.15MG 12JUL-7AUG:30MG, 3WEEK 6DAYS. ALSO 6MG
     Route: 048
     Dates: start: 20070627, end: 20070807
  3. BIPERIDEN LACTATE [Concomitant]
     Indication: PROPHYLAXIS
     Route: 030
     Dates: start: 20070706, end: 20070722
  4. DORAL [Concomitant]
     Indication: SCHIZOPHRENIA
     Dosage: TAB
     Route: 048
     Dates: start: 20070602, end: 20070704
  5. HALOPERIDOL [Concomitant]
     Indication: SCHIZOPHRENIA
     Dosage: INJ
     Route: 030
     Dates: start: 20070706, end: 20070722
  6. AMOXICILLIN [Concomitant]
     Dates: start: 20070804, end: 20070807
  7. BIPERIDEN HYDROCHLORIDE TAB [Concomitant]
     Indication: PROPHYLAXIS
     Route: 048
     Dates: start: 20070706, end: 20070807
  8. FLUNITRAZEPAM [Concomitant]
     Indication: SCHIZOPHRENIA
     Route: 048
     Dates: end: 20070807
  9. MAINTENANCE MEDIUM 5 [Concomitant]
     Dosage: INJ
     Route: 042
     Dates: start: 20070726, end: 20070727
  10. LEVOTOMIN [Suspect]
     Indication: SCHIZOPHRENIA
     Dosage: 50 MG 4 WEEKS 1DAY. 31JUL07-7AUG07;DOSE INCREASED TO 150 MG ON 31JUL07, 1WEEK 1DAY. TABS 100MG 1JN07
     Route: 048
     Dates: start: 20070702, end: 20070807
  11. SILECE [Concomitant]
     Dates: end: 20070807
  12. CEFOTIAM HYDROCHLORIDE [Concomitant]
     Dosage: 06-AUG-2007 TO 8AUG. DOSE 2G. INJ
     Route: 042
     Dates: start: 20070705, end: 20070808

REACTIONS (5)
  - HEPATIC FAILURE [None]
  - HYPOGLYCAEMIA [None]
  - NEUROLEPTIC MALIGNANT SYNDROME [None]
  - PNEUMONIA [None]
  - DRUG INEFFECTIVE [None]
